FAERS Safety Report 6537529-6 (Version None)
Quarter: 2010Q1

REPORT INFORMATION
  Report Type: 
  Country: None (occurrence: None)
  Receive Date: 20100114
  Receipt Date: 20100104
  Transmission Date: 20100710
  Serious: Yes (Disabling)
  Sender: FDA-Public Use
  Company Number: GB-ELI_LILLY_AND_COMPANY-GB200912000795

PATIENT
  Age: 26 Year
  Sex: Male
  Weight: 88 kg

DRUGS (2)
  1. ZYPREXA [Suspect]
     Indication: SCHIZOAFFECTIVE DISORDER
     Dosage: 20 MG, UNKNOWN
     Route: 048
  2. LITHIUM [Concomitant]
     Indication: DEPRESSION
     Dosage: UNK, UNKNOWN
     Route: 065

REACTIONS (4)
  - HYPERSOMNIA [None]
  - NERVE INJURY [None]
  - OVERDOSE [None]
  - SUDDEN ONSET OF SLEEP [None]
